FAERS Safety Report 4311062-4 (Version None)
Quarter: 2004Q1

REPORT INFORMATION
  Report Type: 
  Country: None (occurrence: None)
  Receive Date: 20040302
  Receipt Date: 20040223
  Transmission Date: 20041129
  Serious: Yes (Death, Life-Threatening, Hospitalization, Other)
  Sender: FDA-Public Use
  Company Number: 2004003186

PATIENT
  Age: 52 Year
  Sex: Male
  Weight: 75 kg

DRUGS (15)
  1. VFEND [Suspect]
     Indication: LUNG INFECTION
     Dosage: SEE IMAGE
     Dates: start: 20040101, end: 20040101
  2. VFEND [Suspect]
     Indication: SCEDOSPORIUM INFECTION
     Dosage: SEE IMAGE
     Dates: start: 20040101, end: 20040101
  3. VFEND [Suspect]
     Indication: LUNG INFECTION
     Dosage: SEE IMAGE
     Dates: start: 20040101
  4. VFEND [Suspect]
     Indication: SCEDOSPORIUM INFECTION
     Dosage: SEE IMAGE
     Dates: start: 20040101
  5. CASPOFUNGIN (CASPOFUNGIN) [Concomitant]
  6. BACTRIM [Concomitant]
  7. HYDROCORTISONE [Concomitant]
  8. CLONIDINE [Concomitant]
  9. WARFARIN SODIUM [Concomitant]
  10. GANCICLOVIR SODIUM [Concomitant]
  11. LOPERAMIDE HYDROCHLORIDE [Concomitant]
  12. METOPROLOL TARTRATE [Concomitant]
  13. NYSTATIN [Concomitant]
  14. OMEPRAZOLE [Concomitant]
  15. FK (SODIUM BICARBONATE, CALCIUM CARBONATE, MAGNESIUM ALUMINUM SILICATE [Concomitant]

REACTIONS (5)
  - ARRHYTHMIA [None]
  - ATRIAL FIBRILLATION [None]
  - DISEASE PROGRESSION [None]
  - FUNGAL INFECTION [None]
  - HEART RATE IRREGULAR [None]
